FAERS Safety Report 10410584 (Version 3)
Quarter: 2014Q4

REPORT INFORMATION
  Report Type: Spontaneous
  Country: US (occurrence: US)
  Receive Date: 20140826
  Receipt Date: 20141215
  Transmission Date: 20150528
  Serious: No
  Sender: FDA-Public Use
  Company Number: US-BRISTOL-MYERS SQUIBB COMPANY-20576823

PATIENT
  Sex: Male

DRUGS (1)
  1. KENALOG-40 [Suspect]
     Active Substance: TRIAMCINOLONE ACETONIDE
     Indication: RASH
     Dosage: UNK
     Route: 030

REACTIONS (9)
  - Head discomfort [Unknown]
  - Skeletal injury [Unknown]
  - Restlessness [Unknown]
  - Night sweats [Unknown]
  - Insomnia [Unknown]
  - Hypersensitivity [Unknown]
  - Injection site scab [Unknown]
  - Pollakiuria [Unknown]
  - Musculoskeletal pain [Unknown]
